FAERS Safety Report 6855729-2 (Version None)
Quarter: 2010Q3

REPORT INFORMATION
  Report Type: 
  Country: None (occurrence: None)
  Receive Date: 20100719
  Receipt Date: 20090923
  Transmission Date: 20110219
  Serious: No
  Sender: FDA-Public Use
  Company Number: US-KINGPHARMUSA00001-K200901180

PATIENT
  Sex: Female
  Weight: 52.154 kg

DRUGS (1)
  1. LEVOXYL [Suspect]
     Indication: THYROID DISORDER
     Dosage: 75 MCG, QD
     Route: 048
     Dates: start: 19940101

REACTIONS (1)
  - DYSPNOEA [None]
